FAERS Safety Report 9865442 (Version 3)
Quarter: 2017Q1

REPORT INFORMATION
  Report Type: Spontaneous
  Country: US (occurrence: US)
  Receive Date: 20140203
  Receipt Date: 20170218
  Transmission Date: 20170429
  Serious: No
  Sender: FDA-Public Use
  Company Number: US-ALLERGAN-1308132US

PATIENT
  Age: 66 Year
  Sex: Female

DRUGS (1)
  1. RESTASIS [Suspect]
     Active Substance: CYCLOSPORINE
     Indication: DRY EYE
     Dosage: 2 GTT, BID
     Route: 047
     Dates: end: 201606

REACTIONS (2)
  - Cataract [Unknown]
  - Halo vision [Recovering/Resolving]

NARRATIVE: CASE EVENT DATE: 201606
